FAERS Safety Report 5517161-3 (Version None)
Quarter: 2007Q4

REPORT INFORMATION
  Report Type: 
  Country: None (occurrence: None)
  Receive Date: 20071114
  Receipt Date: 20071113
  Transmission Date: 20080405
  Serious: Yes (Hospitalization)
  Sender: FDA-Public Use
  Company Number: D0055103A

PATIENT
  Age: 16 Year
  Sex: Female
  Weight: 75 kg

DRUGS (4)
  1. ZOFRAN [Suspect]
     Dosage: 8MG SEE DOSAGE TEXT
     Route: 048
     Dates: start: 20071010, end: 20071010
  2. AMITRIPTYLINE HCL [Suspect]
     Dosage: 75MG SEE DOSAGE TEXT
     Route: 048
     Dates: start: 20071010, end: 20071010
  3. DICLO [Suspect]
     Dosage: 4TAB PER DAY
     Route: 048
     Dates: start: 20071010, end: 20071010
  4. OXAZEPAM [Suspect]
     Dosage: 10MG SEE DOSAGE TEXT
     Route: 048
     Dates: start: 20071010, end: 20071010

REACTIONS (5)
  - INTENTIONAL OVERDOSE [None]
  - INTUBATION [None]
  - MECHANICAL VENTILATION [None]
  - RESPIRATORY FAILURE [None]
  - SUICIDE ATTEMPT [None]
